FAERS Safety Report 8042021 (Version 2)
Quarter: 2013Q2

REPORT INFORMATION
  Report Type: Report from Study
  Country: MX (occurrence: MX)
  Receive Date: 20110718
  Receipt Date: 20130603
  Transmission Date: 20140414
  Serious: Yes (Death, Hospitalization)
  Sender: FDA-Public Use
  Company Number: PHHY2011MX47615

PATIENT
  Age: 77 Year
  Sex: Male

DRUGS (3)
  1. EXFORGE [Suspect]
     Indication: HYPERTENSION
     Dosage: 1 DF (160/10 MG) DAILY
     Route: 048
     Dates: start: 200803
  2. CORDARONE [Concomitant]
     Indication: HEART RATE
     Dosage: 1 DF/DAY
     Dates: start: 200801
  3. ISCOVER [Concomitant]
     Dosage: 1 DF/DAY
     Dates: start: 200801

REACTIONS (3)
  - Bronchitis [Fatal]
  - Thrombosis [Fatal]
  - Myocardial infarction [Recovering/Resolving]
